FAERS Safety Report 23301895 (Version 2)
Quarter: 2023Q4

REPORT INFORMATION
  Report Type: Spontaneous
  Country: None (occurrence: US)
  Receive Date: 20231215
  Receipt Date: 20231215
  Transmission Date: 20240110
  Serious: No
  Sender: FDA-Public Use
  Company Number: US-Harrow Eye-2149370

PATIENT
  Age: 83 Year
  Sex: Female

DRUGS (7)
  1. MOXEZA [Suspect]
     Active Substance: MOXIFLOXACIN HYDROCHLORIDE
     Indication: Pneumonia fungal
  2. CLARITHROMYCIN [Suspect]
     Active Substance: CLARITHROMYCIN
  3. DOXYCYCLINE [Suspect]
     Active Substance: DOXYCYCLINE
  4. CIPROFLOXACIN [Suspect]
     Active Substance: CIPROFLOXACIN
  5. BACTRIM [Suspect]
     Active Substance: SULFAMETHOXAZOLE\TRIMETHOPRIM
  6. RIFAMPIN [Suspect]
     Active Substance: RIFAMPIN
  7. ETHAMBUTOL [Suspect]
     Active Substance: ETHAMBUTOL HYDROCHLORIDE

REACTIONS (2)
  - Chromatopsia [None]
  - Drug resistance [None]
